FAERS Safety Report 4452832-1 (Version None)
Quarter: 2004Q3

REPORT INFORMATION
  Report Type: 
  Country: None (occurrence: None)
  Receive Date: 20040916
  Receipt Date: 20040903
  Transmission Date: 20050211
  Serious: Yes (Hospitalization, Other)
  Sender: FDA-Public Use
  Company Number: 2004055863

PATIENT
  Age: 50 Year
  Sex: Male

DRUGS (33)
  1. TIKOSYN [Suspect]
     Indication: ARRHYTHMIA
     Dosage: (2 IN 2 D)
     Dates: start: 20040301, end: 20040901
  2. AMLODIPINE [Suspect]
     Indication: ILL-DEFINED DISORDER
  3. DILTIAZEM [Suspect]
     Indication: ILL-DEFINED DISORDER
  4. FENTANYL [Suspect]
     Indication: ILL-DEFINED DISORDER
  5. LISINOPRIL [Suspect]
     Indication: ILL-DEFINED DISORDER
  6. ALBUMIN (HUMAN) [Suspect]
     Indication: ILL-DEFINED DISORDER
  7. PREDNISONE [Concomitant]
  8. PANTOPRAZOLE (PANTOPRAZOLE) [Concomitant]
  9. GUAIFENESIN (GUAIFENESIN) [Concomitant]
  10. TEMAZEPAM [Concomitant]
  11. ALL OTHER THERAPEUTIC PRODUCTS (ALL OTHER THERAPETUTIC PRODUCTS) [Concomitant]
  12. MONTHELUKAST (MONTELUKAST) [Concomitant]
  13. LEVOSALBUTAMOL (LEVOSALBUTAMOL) [Concomitant]
  14. AZITHROMYCIN [Concomitant]
  15. DOCUSATE (DOCUSATE) [Concomitant]
  16. AMIODARONE HCL [Concomitant]
  17. IRBESARTAN (IRBESARTAN) [Concomitant]
  18. FUROSEMIDE (FOROSEMIDE) [Concomitant]
  19. ESMOLOL (ESMOLOL) [Concomitant]
  20. WARFARIN (WARFARIN) [Concomitant]
  21. METHYLPREDNISOLONE [Concomitant]
  22. BUDESONIDE (BUDESONIDE) [Concomitant]
  23. LORAZEPAM [Concomitant]
  24. METRONIDAZOLE [Concomitant]
  25. VANCOMYCIN [Concomitant]
  26. METOCLOPRAMIDE [Concomitant]
  27. MAGNESIUM HYDROXIDE (MAGNESIUM HYDROXIDE) [Concomitant]
  28. BISACODYL (BISACODYL) [Concomitant]
  29. AMIKACIN [Concomitant]
  30. AZTREONAM (AZTREONAM) [Concomitant]
  31. FILBRASTIM (FILGRASTIM) [Concomitant]
  32. POTASSIUM (POTASSIUM) [Concomitant]
  33. MIDAZOLAM HCL [Concomitant]

REACTIONS (13)
  - AGITATION [None]
  - BLOOD PRESSURE FLUCTUATION [None]
  - BLOOD URINE [None]
  - CHEST PAIN [None]
  - DYSPNOEA [None]
  - FLATULENCE [None]
  - GASTRIC DISORDER [None]
  - HALLUCINATION, VISUAL [None]
  - HEART RATE INCREASED [None]
  - HERPES ZOSTER [None]
  - LABORATORY TEST ABNORMAL [None]
  - SWELLING [None]
  - THINKING ABNORMAL [None]
